FAERS Safety Report 5987505-7 (Version None)
Quarter: 2008Q4

REPORT INFORMATION
  Report Type: 
  Country: None (occurrence: None)
  Receive Date: 20081209
  Receipt Date: 20081201
  Transmission Date: 20090506
  Serious: Yes (Other)
  Sender: FDA-Public Use
  Company Number: US-ELI_LILLY_AND_COMPANY-US200810007329

PATIENT
  Sex: Female
  Weight: 107.14 kg

DRUGS (3)
  1. HUMULIN 70/30 [Suspect]
     Indication: DIABETES MELLITUS
     Dosage: 25 U, 2/D
     Dates: start: 19870101
  2. HUMULIN 70/30 [Suspect]
     Dosage: 20 U, 2/D
     Dates: start: 20080914
  3. HUMULIN 70/30 [Suspect]
     Dosage: 10 U, 2/D
     Dates: start: 20080918

REACTIONS (10)
  - BLOOD GLUCOSE DECREASED [None]
  - BLOOD GLUCOSE INCREASED [None]
  - CATARACT [None]
  - EYE DISORDER [None]
  - EYE LASER SCAR [None]
  - HYPERTENSION [None]
  - OBESITY [None]
  - REFRACTION DISORDER [None]
  - RETINAL HAEMORRHAGE [None]
  - WEIGHT DECREASED [None]
